FAERS Safety Report 11824171 (Version 2)
Quarter: 2016Q1

REPORT INFORMATION
  Report Type: Report from Study
  Country: US (occurrence: US)
  Receive Date: 20151210
  Receipt Date: 20160127
  Transmission Date: 20160525
  Serious: Yes (Hospitalization, Other)
  Sender: FDA-Public Use
  Company Number: US-BAYER-2015-479166

PATIENT
  Age: 61 Year
  Sex: Female
  Weight: 82.99 kg

DRUGS (8)
  1. STIVARGA [Suspect]
     Active Substance: REGORAFENIB
     Indication: COLON CANCER
     Dosage: 160 MG (DAILY FOR 21 DAYS ON- 7 DAYS OFF) (40 MG TABLET)
     Route: 048
  2. NALOXONE HCL W/ OXYCODONE HCL [Concomitant]
     Dosage: 5 MG
  3. PROCTOFOAM HC [Concomitant]
     Active Substance: HYDROCORTISONE ACETATE\PRAMOXINE HYDROCHLORIDE
  4. LORAZEPAM. [Concomitant]
     Active Substance: LORAZEPAM
     Dosage: 0.5 MG
  5. FENTANYL. [Concomitant]
     Active Substance: FENTANYL
     Dosage: 12 MCG/
  6. CEFDINIR. [Concomitant]
     Active Substance: CEFDINIR
     Dosage: 300 MG
  7. METRONIDAZOLE. [Concomitant]
     Active Substance: METRONIDAZOLE
     Dosage: 500 MG
  8. DRONABINOL. [Concomitant]
     Active Substance: DRONABINOL
     Dosage: 2.5 MG

REACTIONS (6)
  - Malaise [Unknown]
  - Drug ineffective [Unknown]
  - Diarrhoea [Unknown]
  - Skin exfoliation [Unknown]
  - Pancreatitis [Unknown]
  - Skin lesion [Unknown]
